FAERS Safety Report 7497617-7 (Version None)
Quarter: 2011Q2

REPORT INFORMATION
  Report Type: 
  Country: None (occurrence: None)
  Receive Date: 20110523
  Receipt Date: 20110509
  Transmission Date: 20111010
  Serious: Yes (Other)
  Sender: FDA-Public Use
  Company Number: US-ELI_LILLY_AND_COMPANY-US201105003684

PATIENT
  Age: 16 Year
  Sex: Male

DRUGS (15)
  1. PROZAC [Suspect]
  2. LORAZEPAM [Concomitant]
     Indication: INSOMNIA
     Dosage: 0.5 MG, UNK
     Route: 048
  3. DAPTOMYCIN [Concomitant]
     Indication: ANTIBIOTIC THERAPY
     Dosage: 266.4 MG, EVERY 6 HRS
     Route: 042
  4. CITALOPRAM HYDROBROMIDE [Concomitant]
     Indication: DEPRESSION
     Dosage: 10 MG, QD
     Route: 048
  5. CLONAZEPAM [Concomitant]
     Indication: CATATONIA
     Dosage: 0.5 MG, BID
     Route: 048
  6. ZOLPIDEM [Concomitant]
     Indication: INSOMNIA
     Dosage: 4 DF, UNK
  7. MULTI-VITAMIN [Concomitant]
     Dosage: 1 DF, BID
     Route: 048
  8. OLANZAPINE [Suspect]
     Dosage: 5 MG, TID
     Route: 048
  9. OLANZAPINE [Suspect]
     Indication: PSYCHOTIC BEHAVIOUR
     Dosage: 7.5 MG, DAILY (1/D)
     Route: 048
  10. PIPERACILLIN AND TAZOBACTAM [Concomitant]
     Indication: ANTIBIOTIC THERAPY
     Dosage: 3000 MG, EVERY 6 HRS
     Route: 042
  11. ACETAMINOPHEN [Concomitant]
     Dosage: 650 MG, EVERY 6 HRS
     Route: 048
  12. LORAZEPAM [Concomitant]
     Dosage: 1 MG, EVERY 4 HRS
     Route: 042
  13. HALOPERIDOL [Concomitant]
     Indication: AGITATION
     Route: 042
  14. DIPHENHYDRAMINE HCL [Concomitant]
     Dosage: 12.5 MG, EVERY 6 HRS
     Route: 042
  15. ZINC SULFATE [Concomitant]
     Dosage: 220 MG, BID
     Route: 048

REACTIONS (2)
  - DRUG INEFFECTIVE [None]
  - AGRANULOCYTOSIS [None]
